FAERS Safety Report 17760127 (Version 1)
Quarter: 2020Q2

REPORT INFORMATION
  Report Type: Spontaneous
  Country: GB (occurrence: GB)
  Receive Date: 20200508
  Receipt Date: 20200508
  Transmission Date: 20200714
  Serious: Yes (Other)
  Sender: FDA-Public Use
  Company Number: GB-ACCORD-181140

PATIENT
  Age: 51 Year
  Sex: Male
  Weight: 73 kg

DRUGS (11)
  1. PIRENZEPINE/PIRENZEPINE DIHYDROCHLORIDE [Concomitant]
     Active Substance: PIRENZEPINE
  2. LANSOPRAZOLE. [Concomitant]
     Active Substance: LANSOPRAZOLE
  3. LITHIUM. [Concomitant]
     Active Substance: LITHIUM
  4. CLOZAPINE. [Suspect]
     Active Substance: CLOZAPINE
     Indication: SCHIZOAFFECTIVE DISORDER
     Route: 048
     Dates: start: 201801
  5. COLECALCIFEROL [Concomitant]
     Active Substance: CHOLECALCIFEROL
  6. CLONAZEPAM. [Concomitant]
     Active Substance: CLONAZEPAM
  7. MULTIVITE [Concomitant]
     Active Substance: VITAMINS
  8. SENNA ALEXANDRINA [Concomitant]
     Active Substance: SENNA LEAF
  9. PARACETAMOL [Concomitant]
     Active Substance: ACETAMINOPHEN
  10. ACETYLSALICYLIC ACID [Concomitant]
     Active Substance: ASPIRIN
  11. DOCUSATE [Concomitant]
     Active Substance: DOCUSATE

REACTIONS (2)
  - Cardiac failure acute [Recovered/Resolved]
  - Left ventricular dysfunction [Unknown]

NARRATIVE: CASE EVENT DATE: 20180612
